FAERS Safety Report 20015857 (Version 1)
Quarter: 2021Q4

REPORT INFORMATION
  Report Type: Spontaneous
  Country: US (occurrence: None)
  Receive Date: 20211102
  Receipt Date: 20211102
  Transmission Date: 20220303
  Serious: Yes (Other)
  Sender: FDA-Public Use
  Company Number: None

PATIENT
  Age: 32 Year
  Sex: Male
  Weight: 106 kg

DRUGS (5)
  1. BAMLANIVIMAB\ETESEVIMAB [Suspect]
     Active Substance: BAMLANIVIMAB\ETESEVIMAB
     Indication: SARS-CoV-2 test positive
     Dosage: FREQUENCY : ONCE;?
     Route: 041
     Dates: start: 20211028, end: 20211028
  2. BUPROPION [Concomitant]
     Active Substance: BUPROPION
  3. BREO ELLIPTA [Concomitant]
     Active Substance: FLUTICASONE FUROATE\VILANTEROL TRIFENATATE
  4. HUMIRA [Concomitant]
     Active Substance: ADALIMUMAB
  5. BYSTOLIC [Concomitant]
     Active Substance: NEBIVOLOL HYDROCHLORIDE

REACTIONS (5)
  - Infusion related reaction [None]
  - Chest discomfort [None]
  - Abdominal discomfort [None]
  - Flushing [None]
  - Emotional distress [None]

NARRATIVE: CASE EVENT DATE: 20211028
